FAERS Safety Report 4752541-5 (Version None)
Quarter: 2005Q3

REPORT INFORMATION
  Report Type: 
  Country: None (occurrence: None)
  Receive Date: 20050823
  Receipt Date: 20050808
  Transmission Date: 20060218
  Serious: Yes (Death, Hospitalization)
  Sender: FDA-Public Use
  Company Number: US_0508120499

PATIENT
  Age: 68 Year
  Sex: Female
  Weight: 91 kg

DRUGS (1)
  1. XIGRIS [Suspect]
     Indication: SEPSIS
     Dosage: 25 MG/Q12 HOUR
     Dates: start: 20050713, end: 20050716

REACTIONS (5)
  - CEREBRAL HAEMATOMA [None]
  - CEREBROVASCULAR ACCIDENT [None]
  - ENCEPHALOPATHY [None]
  - INTRACRANIAL PRESSURE INCREASED [None]
  - MYDRIASIS [None]
